FAERS Safety Report 26056342 (Version 3)
Quarter: 2025Q4

REPORT INFORMATION
  Report Type: Other
  Country: JP (occurrence: JP)
  Receive Date: 20251118
  Receipt Date: 20251215
  Transmission Date: 20260117
  Serious: No
  Sender: SUNOVION
  Company Number: JP-SMPA-2025SPA015346

PATIENT
  Age: 32 Year
  Sex: Female
  Weight: 53.5 kg

DRUGS (7)
  1. RELUGOLIX [Suspect]
     Active Substance: RELUGOLIX
     Indication: Ovarian hyperstimulation syndrome
     Dosage: 40 MG
     Route: 048
  2. GONADOTROPHIN, CHORIONIC [Suspect]
     Active Substance: GONADOTROPHIN, CHORIONIC
     Indication: Ovulation induction
     Dosage: 150 IU
  3. GONADOTROPHIN, CHORIONIC [Suspect]
     Active Substance: GONADOTROPHIN, CHORIONIC
     Indication: Ovulation induction
     Dosage: 5000 IU
  4. LETROZOLE [Concomitant]
     Active Substance: LETROZOLE
     Dosage: UNK
  5. Calcium gluconate hydrate [Concomitant]
     Dosage: UNK
  6. CABERGOLINE [Concomitant]
     Active Substance: CABERGOLINE
     Dosage: 0.25 MG, QD
     Route: 048
  7. CABERGOLINE [Concomitant]
     Active Substance: CABERGOLINE
     Dosage: 100 MG, QD
     Route: 048

REACTIONS (1)
  - Off label use [Unknown]
